FAERS Safety Report 7906320-8 (Version None)
Quarter: 2011Q4

REPORT INFORMATION
  Report Type: 
  Country: None (occurrence: None)
  Receive Date: 20111110
  Receipt Date: 20111107
  Transmission Date: 20120403
  Serious: Yes (Death, Hospitalization)
  Sender: FDA-Public Use
  Company Number: AU-EISAI INC-E2020-09868-SOL-AU

PATIENT
  Sex: Male
  Weight: 60 kg

DRUGS (3)
  1. TEMAZEPAM [Concomitant]
     Dosage: UNKNOWN
     Route: 048
     Dates: start: 20110101, end: 20110101
  2. RISPERDAL [Concomitant]
     Route: 048
     Dates: start: 20110101, end: 20110101
  3. ARICEPT [Suspect]
     Route: 048
     Dates: start: 20060427, end: 20110801

REACTIONS (4)
  - HIP FRACTURE [None]
  - PNEUMONIA [None]
  - RESPIRATORY FAILURE [None]
  - FALL [None]
